FAERS Safety Report 18756162 (Version 1)
Quarter: 2021Q1

REPORT INFORMATION
  Report Type: Report from Study
  Country: CA (occurrence: CA)
  Receive Date: 20210119
  Receipt Date: 20210119
  Transmission Date: 20210419
  Serious: Yes (Death)
  Sender: FDA-Public Use
  Company Number: CA-PFIZER INC-2021029323

PATIENT

DRUGS (9)
  1. ETOPOSIDE. [Suspect]
     Active Substance: ETOPOSIDE
     Dosage: 80 MG/M2, CYCLIC (ON DAY 2 AND DAY 3 OF WEEKS 1, 3, 5,7 AND 9)
     Route: 048
  2. COTRIMOXAZOLE [Concomitant]
     Active Substance: SULFAMETHOXAZOLE\TRIMETHOPRIM
     Dosage: CYCLIC 1 DS ORAL CYCLIC (2 TIMES A DAY FROM WEEK 2 TO 9)
     Route: 048
  3. DOXORUBICIN HCL [Suspect]
     Active Substance: DOXORUBICIN HYDROCHLORIDE
     Indication: LUNG NEOPLASM MALIGNANT
     Dosage: 40 MG/M2, CYCLIC (ON WEEKS 1, 3, 5,7 AND 9)
     Route: 042
  4. ETOPOSIDE. [Suspect]
     Active Substance: ETOPOSIDE
     Indication: LUNG NEOPLASM MALIGNANT
     Dosage: 80 MG/M2, CYCLIC (ON DAY 1 OF WEEKS 1, 3, 5,7 AND 9)
     Route: 042
  5. KETOCONAZOLE. [Concomitant]
     Active Substance: KETOCONAZOLE
     Dosage: 200 MG, CYCLIC (DAILY FROM WEEKS 2 TO 9)
     Route: 048
  6. VINCRISTINE SULFATE. [Suspect]
     Active Substance: VINCRISTINE SULFATE
     Indication: LUNG NEOPLASM MALIGNANT
     Dosage: 1 MG/M2, CYCLIC (ON WEEKS 1, 2, 4, 6 AND 8)
     Route: 042
  7. PREDNISONE [PREDNISONE ACETATE] [Concomitant]
     Active Substance: PREDNISONE ACETATE
     Dosage: 50 MG, CYCLIC (DAILY FROM WEEKS 1 TO 6, ALTERNATE DAYS FROM WEEKS 6 TO 9)
  8. CISPLATIN. [Suspect]
     Active Substance: CISPLATIN
     Indication: LUNG NEOPLASM MALIGNANT
     Dosage: 25 MG/M2, CYCLIC (FOR 8 WEEKS)
     Route: 042
  9. CIMETIDINE [CIMETIDINE HYDROCHLORIDE] [Concomitant]
     Dosage: 600 MG, CYCLIC (TWO TIMES A DAY FOR 9 WEEKS)

REACTIONS (2)
  - Pneumonitis [Fatal]
  - Acute respiratory distress syndrome [Fatal]
